FAERS Safety Report 8358612-9 (Version None)
Quarter: 2012Q2

REPORT INFORMATION
  Report Type: 
  Country: None (occurrence: None)
  Receive Date: 20120514
  Receipt Date: 20120510
  Transmission Date: 20120825
  Serious: Yes (Death, Other)
  Sender: FDA-Public Use
  Company Number: US-ELI_LILLY_AND_COMPANY-US201202007648

PATIENT
  Sex: Female

DRUGS (6)
  1. FLUTICASONE FUROATE [Concomitant]
     Indication: SEASONAL ALLERGY
  2. BYETTA [Suspect]
     Indication: TYPE 2 DIABETES MELLITUS
     Dosage: 5 UG, BID
     Route: 058
     Dates: start: 20090701
  3. BYETTA [Suspect]
     Dosage: 10 UG, BID
     Dates: start: 20090801
  4. CALCIUM CARBONATE [Concomitant]
     Indication: POSTMENOPAUSE
  5. ENOXAPARIN [Concomitant]
     Indication: DEEP VEIN THROMBOSIS
     Dosage: UNK
  6. LISINOPRIL AND HYDROCHLOROTHIAZIDE [Concomitant]
     Indication: HYPERTENSION
     Dosage: UNK
     Dates: start: 20100801

REACTIONS (5)
  - DEEP VEIN THROMBOSIS [None]
  - NEOPLASM [None]
  - PANCREATIC CARCINOMA [None]
  - METASTATIC NEOPLASM [None]
  - DEATH [None]
